FAERS Safety Report 16689969 (Version 2)
Quarter: 2019Q3

REPORT INFORMATION
  Report Type: Spontaneous
  Country: PL (occurrence: PL)
  Receive Date: 20190809
  Receipt Date: 20190919
  Transmission Date: 20191004
  Serious: Yes (Other)
  Sender: FDA-Public Use
  Company Number: PL-PFIZER INC-2019333896

PATIENT
  Age: 63 Year
  Sex: Female
  Weight: 85 kg

DRUGS (26)
  1. LACIDOFIL [Concomitant]
     Active Substance: LACTOBACILLUS ACIDOPHILUS\LACTOBACILLUS RHAMNOSUS
     Dosage: 1 DF, 2X/DAY (2X1 CAPSULE)
  2. ACARD [Concomitant]
     Active Substance: ASPIRIN
     Dosage: 75 MG, 1X/DAY (1X1 TABLET)
  3. VITAMIN B6 [Concomitant]
     Active Substance: PYRIDOXINE HYDROCHLORIDE
     Dosage: 2 DF, 3X/DAY (3X2TABLET)
  4. AZULAN [Concomitant]
     Dosage: UNK, DAILY (SEVERAL TIMES A DAY)
  5. SUTENT [Suspect]
     Active Substance: SUNITINIB MALATE
     Indication: RENAL CANCER
     Dosage: 50 MG, 1X/DAY
     Route: 048
     Dates: start: 20140801, end: 20150922
  6. CLEXANE [Concomitant]
     Active Substance: ENOXAPARIN SODIUM
     Dosage: 1 DF, 1X/DAY (1X1 TABLET)
     Route: 058
  7. LOPERAMIDE HYDROCHLORIDE. [Concomitant]
     Active Substance: LOPERAMIDE HYDROCHLORIDE
     Dosage: 1 DF, AS NEEDED
  8. FUROSEMID [Concomitant]
     Active Substance: FUROSEMIDE
     Dosage: 1 DF, 1X/DAY (1X1 TABLET)
  9. SIMETHICONE (DIMETHICONE) [Concomitant]
     Active Substance: DIMETHICONE
     Dosage: 1 DF, 3X/DAY (4X1 TABLET)
  10. SIMETHICONE (DIMETHICONE) [Concomitant]
     Active Substance: DIMETHICONE
     Dosage: 1 DF, 4X/DAY (4X1 TABLET)
  11. EUTHYROX N 50 [Concomitant]
     Dosage: 50 UG, 1X/DAY (1X1 TABLET)
  12. POSORUTIN [Concomitant]
     Dosage: 1 DF, 3X/DAY (3X1 DROP)
  13. UREA OINTMENT [Concomitant]
     Active Substance: UREA
     Dosage: UNK, 2X/DAY (EVERY 12 HOURS)
  14. HYDROCORTISONE. [Concomitant]
     Active Substance: HYDROCORTISONE
     Dosage: UNK (AS RECOMMENDED BY THE ENDOCRINOLOGIST)
  15. KALIPOZ [Concomitant]
     Active Substance: POTASSIUM CHLORIDE
     Dosage: 1 DF, 1X/DAY (1X1 TABLET)
  16. CORTINEFF [Concomitant]
     Active Substance: FLUDROCORTISONE
     Dosage: UNK
  17. NITROMINT [Concomitant]
     Active Substance: NITROGLYCERIN
     Dosage: UNK, AS NEEDED
  18. NYSTATIN. [Concomitant]
     Active Substance: NYSTATIN
     Dosage: UNK, 2X/DAY (EVERY 12 HOURS)
  19. AMLOZEK [Concomitant]
     Active Substance: AMLODIPINE BESYLATE
     Dosage: 10 MG, 1X/DAY (1X1 TABLET)
  20. TRAMAL [Concomitant]
     Active Substance: TRAMADOL
     Dosage: 50 MG, 1X/DAY (1X1 TABLET)
  21. BIOPRAZOL [Concomitant]
     Dosage: 20 MG, 1X/DAY (1X1 TABLET)
  22. CYCLONAMINE [Concomitant]
     Active Substance: ETHAMSYLATE
     Dosage: 250 MG, 3X/DAY (3X1 TABLET)
  23. HEPARIN [Concomitant]
     Active Substance: HEPARIN SODIUM
     Dosage: UNK (PREVENTIVE DOSE)
  24. KALIPOZ [Concomitant]
     Active Substance: POTASSIUM CHLORIDE
     Dosage: 1 DF, 2X/DAY (2X1 TABLET)
  25. BIBLOC [Concomitant]
     Active Substance: BISOPROLOL
     Dosage: 5 MG, 1X/DAY (1X1 TABLET)
  26. LACTULOSA [Concomitant]
     Active Substance: LACTULOSE
     Dosage: 15 ML, UNK

REACTIONS (29)
  - Constipation [Recovered/Resolved]
  - Toothache [Recovered/Resolved]
  - Skin hypertrophy [Recovered/Resolved]
  - Renal failure [Recovered/Resolved]
  - Oedema peripheral [Recovered/Resolved]
  - Swelling face [Recovered/Resolved]
  - Dry skin [Recovered/Resolved]
  - Stomatitis [Recovered/Resolved]
  - Back pain [Recovered/Resolved]
  - Polycythaemia [Recovered/Resolved]
  - Blister [Recovered/Resolved]
  - Urinary tract infection [Recovered/Resolved]
  - Neutropenia [Recovered/Resolved]
  - Nausea [Recovered/Resolved]
  - Diarrhoea [Recovered/Resolved]
  - Thrombocytopenia [Recovered/Resolved]
  - Pyrexia [Recovered/Resolved]
  - Hypertension [Recovered/Resolved]
  - Skin irritation [Recovered/Resolved]
  - Yellow skin [Recovered/Resolved]
  - Pain in extremity [Recovered/Resolved]
  - Anaemia [Recovered/Resolved]
  - Eyelid oedema [Recovered/Resolved]
  - Flatulence [Recovered/Resolved]
  - Leukopenia [Recovered/Resolved]
  - Hypothyroidism [Recovered/Resolved]
  - Abdominal pain upper [Recovered/Resolved]
  - Feeling hot [Recovered/Resolved]
  - Eructation [Recovered/Resolved]

NARRATIVE: CASE EVENT DATE: 201408
